FAERS Safety Report 8645229 (Version 3)
Quarter: 2012Q4

REPORT INFORMATION
  Report Type: 
  Country: FR (occurrence: FR)
  Receive Date: 20120702
  Receipt Date: 20121113
  Transmission Date: 20130627
  Serious: Yes (Hospitalization, Other)
  Sender: FDA-Public Use
  Company Number: FR-PFIZER INC-2012155000

PATIENT
  Age: 15 Year
  Sex: Male

DRUGS (4)
  1. CORDARONE [Suspect]
     Indication: DRUG USE FOR UNKNOWN INDICATION
     Dosage: UNK one day only
     Route: 065
     Dates: start: 20110529, end: 20110529
  2. CEFPODOXIME PROXETIL [Suspect]
     Indication: ERYTHEMA
     Dosage: UNK
     Route: 048
     Dates: start: 20110522, end: 20110528
  3. DOBUTAMINE HYDROCHLORIDE [Suspect]
     Indication: DRUG USE FOR UNKNOWN INDICATION
     Dosage: UNK
     Route: 042
     Dates: start: 20110529, end: 20110531
  4. AUGMENTIN [Suspect]
     Indication: PNEUMOPATHY
     Dosage: UNK
     Dates: start: 20110529, end: 20110604

REACTIONS (5)
  - Acute generalised exanthematous pustulosis [Recovered/Resolved]
  - Myocarditis [Unknown]
  - Lung disorder [Unknown]
  - Streptococcus test positive [Unknown]
  - Fungal test positive [Unknown]
